FAERS Safety Report 11128021 (Version 1)
Quarter: 2015Q2

REPORT INFORMATION
  Report Type: Spontaneous
  Country: US (occurrence: None)
  Receive Date: 20150520
  Receipt Date: 20150520
  Transmission Date: 20150821
  Serious: Yes (Hospitalization)
  Sender: FDA-Public Use
  Company Number: None

PATIENT
  Age: 48 Year
  Sex: Female

DRUGS (1)
  1. REMICADE [Suspect]
     Active Substance: INFLIXIMAB
     Indication: CROHN^S DISEASE
     Route: 042
     Dates: start: 20150406, end: 20150420

REACTIONS (4)
  - Musculoskeletal stiffness [None]
  - Myalgia [None]
  - Pain in extremity [None]
  - Movement disorder [None]

NARRATIVE: CASE EVENT DATE: 20150519
